FAERS Safety Report 6674173-4 (Version None)
Quarter: 2010Q2

REPORT INFORMATION
  Report Type: 
  Country: None (occurrence: None)
  Receive Date: 20100409
  Receipt Date: 20100331
  Transmission Date: 20101027
  Serious: Yes (Hospitalization, Other)
  Sender: FDA-Public Use
  Company Number: US-PURDUE-USA-2009-0039210

PATIENT
  Sex: Male
  Weight: 68.9 kg

DRUGS (5)
  1. DILAUDID [Suspect]
     Indication: BREAKTHROUGH PAIN
     Dosage: 2 MG, SEE TEXT
     Route: 048
     Dates: start: 20081218
  2. SUNITINIB MALATE OR PLACEBO (CODE NOT BROKEN) [Suspect]
     Indication: PROSTATE CANCER
     Dosage: 37.5 MG, DAILY
     Dates: start: 20090319, end: 20090321
  3. PREDNISONE [Suspect]
     Indication: PROSTATE CANCER
     Dosage: 5 MG, BID
     Route: 048
     Dates: start: 20090319, end: 20090301
  4. FENTANYL [Suspect]
     Indication: PAIN
     Dosage: 25 MCG, Q1H
     Route: 062
     Dates: start: 20081218
  5. MEGACE [Concomitant]
     Indication: DECREASED APPETITE
     Dosage: UNK
     Dates: start: 20081218, end: 20090420

REACTIONS (3)
  - CONSTIPATION [None]
  - PAIN [None]
  - PROSTATE CANCER [None]
